FAERS Safety Report 4828434-1 (Version None)
Quarter: 2005Q4

REPORT INFORMATION
  Report Type: 
  Country: None (occurrence: None)
  Receive Date: 20051014
  Receipt Date: 20050727
  Transmission Date: 20060501
  Serious: No
  Sender: FDA-Public Use
  Company Number: 2005SP001103

PATIENT
  Age: 58 Year
  Sex: Female
  Weight: 70.3075 kg

DRUGS (8)
  1. LUNESTA [Suspect]
     Indication: INSOMNIA
     Dosage: SEE IMAGE
     Route: 048
     Dates: start: 20050523, end: 20050523
  2. LUNESTA [Suspect]
     Indication: INSOMNIA
     Dosage: SEE IMAGE
     Route: 048
     Dates: start: 20050524, end: 20050524
  3. ALPRAZOLAM [Concomitant]
  4. PAROXETINE HCL [Concomitant]
  5. BENDROFLUMETHIAZIDE [Concomitant]
  6. KLOR-CON [Concomitant]
  7. TRAVATAN [Concomitant]
  8. ASPIRIN [Concomitant]

REACTIONS (4)
  - DRUG INEFFECTIVE [None]
  - HYPERHIDROSIS [None]
  - INITIAL INSOMNIA [None]
  - PRURITUS [None]
